FAERS Safety Report 5542904-2 (Version None)
Quarter: 2007Q4

REPORT INFORMATION
  Report Type: 
  Country: None (occurrence: None)
  Receive Date: 20071210
  Receipt Date: 20071129
  Transmission Date: 20080405
  Serious: Yes (Death, Other)
  Sender: FDA-Public Use
  Company Number: US-PFIZER INC-2007100617

PATIENT
  Age: 12 Year
  Sex: Male
  Weight: 68 kg

DRUGS (20)
  1. SOLU-MEDROL [Suspect]
     Indication: ASTHMA
     Dates: start: 19970101, end: 19970101
  2. FENTANYL [Suspect]
  3. IBUPROFEN [Suspect]
  4. ALBUTEROL SULFATE [Suspect]
     Indication: ASTHMA
     Route: 055
     Dates: start: 19960901, end: 19970412
  5. TERBUTALINE SULFATE [Suspect]
     Dates: start: 19970101, end: 19970101
  6. LASIX [Suspect]
  7. DIAMOX [Suspect]
  8. OXACILLIN [Concomitant]
  9. CEFTAZIDIME [Concomitant]
  10. METHYLPREDNISOLONE [Concomitant]
  11. TERBUTALINE SULFATE [Concomitant]
  12. ATROVENT [Concomitant]
  13. EPINEPHRINE [Concomitant]
  14. DOPAMINE HCL [Concomitant]
  15. DOBUTAMINE HCL [Concomitant]
  16. RANITIDINE HCL [Concomitant]
  17. SUCRALFATE [Concomitant]
  18. AZMACORT [Concomitant]
  19. PREDNISONE [Concomitant]
  20. NASACORT [Concomitant]

REACTIONS (37)
  - ACUTE RESPIRATORY DISTRESS SYNDROME [None]
  - BLOOD CALCIUM DECREASED [None]
  - BLOOD MAGNESIUM INCREASED [None]
  - CARDIOGENIC SHOCK [None]
  - CLOSTRIDIAL INFECTION [None]
  - COAGULOPATHY [None]
  - DIARRHOEA [None]
  - DISSEMINATED INTRAVASCULAR COAGULATION [None]
  - DRUG INEFFECTIVE [None]
  - EROSIVE DUODENITIS [None]
  - ESCHERICHIA INFECTION [None]
  - GASTRIC PERFORATION [None]
  - GENERAL PHYSICAL HEALTH DETERIORATION [None]
  - HEPATIC FAILURE [None]
  - HEPATIC NECROSIS [None]
  - HEPATIC STEATOSIS [None]
  - ILEUS PARALYTIC [None]
  - INTESTINAL GANGRENE [None]
  - INTESTINAL ISCHAEMIA [None]
  - LACTIC ACIDOSIS [None]
  - MULTI-ORGAN FAILURE [None]
  - OVERDOSE [None]
  - PERITONEAL HAEMORRHAGE [None]
  - PULMONARY HAEMORRHAGE [None]
  - RENAL FAILURE [None]
  - RENAL TUBULAR NECROSIS [None]
  - RESPIRATORY DEPRESSION [None]
  - RESPIRATORY DISTRESS [None]
  - RETROPERITONEAL HAEMORRHAGE [None]
  - RHINORRHOEA [None]
  - SEPTIC SHOCK [None]
  - SINUSITIS [None]
  - SOMNOLENCE [None]
  - STATUS ASTHMATICUS [None]
  - THROMBOSIS [None]
  - UPPER GASTROINTESTINAL HAEMORRHAGE [None]
  - UPPER RESPIRATORY TRACT CONGESTION [None]
